FAERS Safety Report 5814550-4 (Version None)
Quarter: 2008Q3

REPORT INFORMATION
  Report Type: 
  Country: None (occurrence: None)
  Receive Date: 20080718
  Receipt Date: 20070813
  Transmission Date: 20090109
  Serious: No
  Sender: FDA-Public Use
  Company Number: US-KINGPHARMUSA00001-K200701026

PATIENT

DRUGS (10)
  1. LEVOXYL [Suspect]
     Indication: THYROID FUNCTION TEST ABNORMAL
     Dosage: 200 MCG, 6 TIMES PER WEEK
     Route: 048
     Dates: start: 20010901
  2. ZIAC       /01166101/ [Concomitant]
     Indication: HYPERTENSION
     Dosage: 10 MG, QD
     Route: 048
  3. DIOVAN      /01319601/ [Concomitant]
     Indication: HYPERTENSION
     Dosage: UNK, QD
     Route: 048
  4. CALCIUM [Concomitant]
     Indication: HYPOPARATHYROIDISM
     Dosage: 600 MG, BID
     Route: 048
  5. VITAMIN A [Concomitant]
     Indication: HYPOPARATHYROIDISM
     Dosage: 50000 IU, QW
     Route: 048
  6. MULTIVITAMIN       /00831701/ [Concomitant]
     Indication: VITAMIN SUPPLEMENTATION
     Dosage: UNK, QD
     Route: 048
  7. FELDENE [Concomitant]
     Indication: ARTHRITIS
     Dosage: 1 TABLET, PRN
     Route: 048
  8. LASIX [Concomitant]
     Indication: FLUID RETENTION
     Dosage: 20 MG, PRN
     Route: 048
  9. MAGNESIUM OXIDE [Concomitant]
     Indication: ELECTROLYTE SUBSTITUTION THERAPY
     Dosage: 400 MG, PRN
     Route: 048
  10. POTASSIUM CHLORIDE [Concomitant]
     Indication: ELECTROLYTE SUBSTITUTION THERAPY
     Dosage: 20 MG, PRN
     Route: 048

REACTIONS (2)
  - MALAISE [None]
  - WEIGHT INCREASED [None]
